FAERS Safety Report 26048058 (Version 4)
Quarter: 2025Q4

REPORT INFORMATION
  Report Type: Report from Study
  Country: CN (occurrence: CN)
  Receive Date: 20251114
  Receipt Date: 20251226
  Transmission Date: 20260117
  Serious: Yes (Other)
  Sender: JAZZ
  Company Number: CN-JAZZ PHARMACEUTICALS-2025-CN-026210

PATIENT
  Age: 67 Year
  Sex: Female

DRUGS (4)
  1. ZIIHERA [Suspect]
     Active Substance: ZANIDATAMAB-HRII
     Indication: Hepatic neoplasm
     Dosage: 1200 MILLIGRAM, Q2W
     Dates: start: 20250822
  2. ZIIHERA [Suspect]
     Active Substance: ZANIDATAMAB-HRII
     Dosage: 1200 MILLIGRAM, Q2W
     Dates: start: 20250910
  3. ZIIHERA [Suspect]
     Active Substance: ZANIDATAMAB-HRII
     Dosage: 1200 MILLIGRAM, Q2W
     Dates: start: 20251013
  4. LENVATINIB [Suspect]
     Active Substance: LENVATINIB
     Indication: Product used for unknown indication
     Dosage: UNK

REACTIONS (5)
  - Pyrexia [Recovered/Resolved]
  - Arthralgia [Recovered/Resolved]
  - Hypersensitivity [Recovered/Resolved]
  - Hypertension [Unknown]
  - Off label use [Unknown]

NARRATIVE: CASE EVENT DATE: 20250822
